FAERS Safety Report 9555682 (Version 8)
Quarter: 2018Q2

REPORT INFORMATION
  Report Type: Spontaneous
  Country: US (occurrence: US)
  Receive Date: 20130926
  Receipt Date: 20180402
  Transmission Date: 20180711
  Serious: Yes (Other)
  Sender: FDA-Public Use
  Company Number: PHEH2013US020067

PATIENT
  Age: 43 Year
  Sex: Male
  Weight: 79.11 kg

DRUGS (10)
  1. ADRIAMYCIN [Concomitant]
     Active Substance: DOXORUBICIN HYDROCHLORIDE
     Indication: PRODUCT USED FOR UNKNOWN INDICATION
     Route: 065
  2. DEXAMETASON [Concomitant]
     Active Substance: DEXAMETHASONE
     Indication: PRODUCT USED FOR UNKNOWN INDICATION
     Route: 065
  3. ZOMETA [Suspect]
     Active Substance: ZOLEDRONIC ACID
     Indication: PLASMA CELL MYELOMA
     Dosage: 4 MG, QMO
     Route: 042
     Dates: end: 20110802
  4. REVLIMID [Concomitant]
     Active Substance: LENALIDOMIDE
     Indication: PRODUCT USED FOR UNKNOWN INDICATION
     Dosage: UNK UKN, UNK
     Route: 065
  5. VINCRISTINE [Concomitant]
     Active Substance: VINCRISTINE
     Indication: PRODUCT USED FOR UNKNOWN INDICATION
     Route: 065
  6. CYTOXAN [Concomitant]
     Active Substance: CYCLOPHOSPHAMIDE
     Indication: PRODUCT USED FOR UNKNOWN INDICATION
     Dosage: UNK UKN, UNK
     Route: 065
  7. AREDIA [Suspect]
     Active Substance: PAMIDRONATE DISODIUM
     Indication: HYPERCALCAEMIA
     Route: 042
  8. RECLAST [Suspect]
     Active Substance: ZOLEDRONIC ACID
     Indication: PRODUCT USED FOR UNKNOWN INDICATION
     Route: 042
  9. MELPHALAN. [Concomitant]
     Active Substance: MELPHALAN
     Indication: PRODUCT USED FOR UNKNOWN INDICATION
     Dosage: UNK UKN, UNK
     Route: 065
  10. BUSULFAN. [Concomitant]
     Active Substance: BUSULFAN
     Indication: PRODUCT USED FOR UNKNOWN INDICATION
     Dosage: UNK UKN, UNK
     Route: 065

REACTIONS (176)
  - Femur fracture [Unknown]
  - Physical disability [Unknown]
  - Deformity [Unknown]
  - Pelvic fluid collection [Unknown]
  - Peripheral vascular disorder [Unknown]
  - Second primary malignancy [Unknown]
  - Ear pain [Unknown]
  - Sciatica [Unknown]
  - Pathological fracture [Unknown]
  - Gingival disorder [Unknown]
  - Fall [Unknown]
  - Tumour lysis syndrome [Unknown]
  - Arrhythmia [Unknown]
  - Dehydration [Unknown]
  - Pharyngitis [Unknown]
  - Dysgeusia [Unknown]
  - Musculoskeletal discomfort [Unknown]
  - Glossodynia [Unknown]
  - Wheezing [Recovering/Resolving]
  - Cough [Unknown]
  - Nasopharyngitis [Unknown]
  - Pruritus generalised [Unknown]
  - Spinal flattening [Unknown]
  - Pneumonitis [Unknown]
  - Lymphoma [Unknown]
  - Spondylolisthesis [Unknown]
  - Facial paralysis [Unknown]
  - Intervertebral disc degeneration [Unknown]
  - Bone cancer [Unknown]
  - Vascular calcification [Unknown]
  - Tooth loss [Unknown]
  - Pallor [Unknown]
  - Hepatic steatosis [Unknown]
  - Muscular weakness [Unknown]
  - Toothache [Unknown]
  - Sputum discoloured [Unknown]
  - Dysphonia [Unknown]
  - Peripheral swelling [Unknown]
  - Constipation [Unknown]
  - Neck pain [Unknown]
  - Muscle spasms [Unknown]
  - Emotional distress [Unknown]
  - Macrocytosis [Unknown]
  - Lymphocytosis [Unknown]
  - Azoospermia [Unknown]
  - Haemorrhoids [Unknown]
  - Ecchymosis [Unknown]
  - Febrile neutropenia [Unknown]
  - Lymphadenopathy [Unknown]
  - Rash vesicular [Unknown]
  - Granulomatous liver disease [Unknown]
  - Pharyngeal erythema [Unknown]
  - Sinusitis [Unknown]
  - Nasal congestion [Unknown]
  - Sinus congestion [Unknown]
  - Rhinorrhoea [Unknown]
  - Musculoskeletal stiffness [Unknown]
  - Arthralgia [Unknown]
  - Anaemia [Unknown]
  - Pyrexia [Unknown]
  - Pain in extremity [Unknown]
  - Pain [Unknown]
  - Anxiety [Unknown]
  - Gingival erythema [Unknown]
  - Intervertebral disc disorder [Unknown]
  - Haematochezia [Unknown]
  - Vitamin B12 deficiency [Unknown]
  - Osteopenia [Unknown]
  - Ear infection [Unknown]
  - Poor dental condition [Unknown]
  - Limb injury [Unknown]
  - Humerus fracture [Unknown]
  - Rash erythematous [Unknown]
  - Oesophagitis [Unknown]
  - Arthritis [Unknown]
  - Upper respiratory tract infection [Unknown]
  - Herpes zoster [Unknown]
  - Eczema [Unknown]
  - Swollen tongue [Unknown]
  - Mucosal dryness [Unknown]
  - Dysphagia [Unknown]
  - Oedema [Unknown]
  - Bone pain [Unknown]
  - Hip fracture [Unknown]
  - Hand fracture [Unknown]
  - Osteoarthropathy [Unknown]
  - Folliculitis [Unknown]
  - Respiratory distress [Unknown]
  - Nerve injury [Unknown]
  - Skin fissures [Unknown]
  - Neuritis [Unknown]
  - Portal tract inflammation [Unknown]
  - Conjunctivitis [Unknown]
  - Oral discomfort [Unknown]
  - Productive cough [Unknown]
  - Diarrhoea [Recovered/Resolved]
  - Decreased appetite [Unknown]
  - Chills [Unknown]
  - Musculoskeletal chest pain [Unknown]
  - Upper limb fracture [Unknown]
  - Aphthous ulcer [Unknown]
  - Femoroacetabular impingement [Unknown]
  - Pneumonia [Unknown]
  - Foot fracture [Unknown]
  - Neuropathy peripheral [Unknown]
  - Vertebral foraminal stenosis [Unknown]
  - Thoracic vertebral fracture [Unknown]
  - Leukocytosis [Unknown]
  - Tooth abscess [Unknown]
  - Flushing [Unknown]
  - Hypoaesthesia [Unknown]
  - Loss of consciousness [Unknown]
  - Gait disturbance [Unknown]
  - Cold sweat [Unknown]
  - Respiratory tract congestion [Recovered/Resolved]
  - Tongue disorder [Unknown]
  - Dry mouth [Unknown]
  - Alopecia [Unknown]
  - Erythema [Unknown]
  - Headache [Unknown]
  - Fatigue [Unknown]
  - Fracture [Unknown]
  - Skin disorder [Unknown]
  - Joint range of motion decreased [Unknown]
  - Spinal osteoarthritis [Unknown]
  - Viral infection [Unknown]
  - Pleural thickening [Unknown]
  - Bone callus excessive [Unknown]
  - Gingivitis [Unknown]
  - Wound [Unknown]
  - Exostosis [Unknown]
  - Dental caries [Unknown]
  - Laceration [Unknown]
  - Sinus disorder [Unknown]
  - Contusion [Unknown]
  - Pancytopenia [Unknown]
  - Urinary tract infection [Unknown]
  - Neutropenia [Unknown]
  - Fear [Unknown]
  - Visual impairment [Unknown]
  - Peripheral coldness [Unknown]
  - Neuralgia [Unknown]
  - Dyspnoea [Unknown]
  - Abdominal discomfort [Unknown]
  - Oropharyngeal pain [Unknown]
  - Weight decreased [Unknown]
  - Joint swelling [Unknown]
  - Asthenia [Unknown]
  - Dizziness [Unknown]
  - Dyspepsia [Recovered/Resolved]
  - Vomiting [Unknown]
  - Musculoskeletal pain [Unknown]
  - Myalgia [Unknown]
  - Bone disorder [Unknown]
  - Injury [Unknown]
  - Intervertebral disc protrusion [Unknown]
  - Atelectasis [Unknown]
  - Kyphosis [Unknown]
  - Migraine [Unknown]
  - Bone cyst [Unknown]
  - Haemoptysis [Unknown]
  - Bronchitis [Unknown]
  - Eye pruritus [Unknown]
  - Stress fracture [Unknown]
  - Wound infection [Unknown]
  - Spinal compression fracture [Unknown]
  - Spinal deformity [Unknown]
  - Vertebral lesion [Unknown]
  - Hepatic enzyme increased [Unknown]
  - Thrombocytopenia [Unknown]
  - Insomnia [Unknown]
  - Paraesthesia [Unknown]
  - Chest pain [Unknown]
  - Rash [Unknown]
  - Back pain [Unknown]
  - Flank pain [Unknown]

NARRATIVE: CASE EVENT DATE: 20110925
